FAERS Safety Report 23529742 (Version 1)
Quarter: 2024Q1

REPORT INFORMATION
  Report Type: Report from Study
  Country: US (occurrence: US)
  Receive Date: 20240216
  Receipt Date: 20240216
  Transmission Date: 20240409
  Serious: No
  Sender: FDA-Public Use
  Company Number: US-TEVA-VS-3140211

PATIENT
  Age: 19 Year
  Sex: Female

DRUGS (1)
  1. CLARAVIS [Suspect]
     Active Substance: ISOTRETINOIN
     Indication: Product used for unknown indication
     Route: 065

REACTIONS (6)
  - Epistaxis [Unknown]
  - Product administration error [Unknown]
  - Lip dry [Unknown]
  - Mood swings [Unknown]
  - Vision blurred [Unknown]
  - Dry eye [Unknown]
